FAERS Safety Report 8077307-2 (Version None)
Quarter: 2012Q1

REPORT INFORMATION
  Report Type: 
  Country: None (occurrence: None)
  Receive Date: 20120127
  Receipt Date: 20120123
  Transmission Date: 20120608
  Serious: Yes (Hospitalization)
  Sender: FDA-Public Use
  Company Number: GB-JNJFOC-20111203929

PATIENT
  Sex: Male
  Weight: 65 kg

DRUGS (3)
  1. NICORETTE [Suspect]
     Route: 062
  2. NIQUITIN LOZENGES [Concomitant]
     Indication: PRODUCT USED FOR UNKNOWN INDICATION
     Route: 048
     Dates: start: 20111127
  3. NICORETTE [Suspect]
     Indication: SMOKING CESSATION THERAPY
     Route: 062
     Dates: start: 20111127

REACTIONS (1)
  - CHEST PAIN [None]
